FAERS Safety Report 11200398 (Version 1)
Quarter: 2015Q2

REPORT INFORMATION
  Report Type: Spontaneous
  Country: DE (occurrence: DE)
  Receive Date: 20150618
  Receipt Date: 20150618
  Transmission Date: 20150821
  Serious: Yes (Death, Hospitalization)
  Sender: FDA-Public Use
  Company Number: DE-B.I. PHARMACEUTICALS,INC./RIDGEFIELD-2015-BI-32300DE

PATIENT
  Age: 45 Year
  Sex: Male
  Weight: 120 kg

DRUGS (3)
  1. AMOXIDURA PLUS [Concomitant]
     Indication: LOCALISED INFECTION
     Dosage: STRENGTH: 875/125 MG
     Route: 048
  2. JARDIANCE [Suspect]
     Active Substance: EMPAGLIFLOZIN
     Indication: TYPE 2 DIABETES MELLITUS
     Dosage: 10 MG
     Route: 048
     Dates: start: 20141217
  3. JANUMET [Concomitant]
     Active Substance: METFORMIN HYDROCHLORIDE\SITAGLIPTIN PHOSPHATE
     Indication: TYPE 2 DIABETES MELLITUS
     Route: 048
     Dates: start: 20141217

REACTIONS (3)
  - Renal failure [Fatal]
  - Diabetic ketoacidosis [Fatal]
  - Aspiration [Fatal]

NARRATIVE: CASE EVENT DATE: 20141231
